FAERS Safety Report 11251695 (Version 1)
Quarter: 2015Q3

REPORT INFORMATION
  Report Type: Spontaneous
  Country: US (occurrence: US)
  Receive Date: 20150708
  Receipt Date: 20150708
  Transmission Date: 20151125
  Serious: No
  Sender: FDA-Public Use
  Company Number: US-ELI_LILLY_AND_COMPANY-US201206002214

PATIENT

DRUGS (2)
  1. ALIMTA [Suspect]
     Active Substance: PEMETREXED DISODIUM
  2. AVASTIN [Concomitant]
     Active Substance: BEVACIZUMAB

REACTIONS (6)
  - Depression [Recovered/Resolved]
  - Fatigue [Recovered/Resolved]
  - Fluid retention [Recovered/Resolved]
  - Nausea [Recovering/Resolving]
  - Back pain [Recovered/Resolved]
  - Headache [Recovered/Resolved]
